FAERS Safety Report 10146710 (Version 1)
Quarter: 2014Q2

REPORT INFORMATION
  Report Type: Spontaneous
  Country: US (occurrence: None)
  Receive Date: 20140430
  Receipt Date: 20140430
  Transmission Date: 20141212
  Serious: Yes (Death)
  Sender: FDA-Public Use
  Company Number: None

PATIENT
  Age: 82 Year
  Sex: Female

DRUGS (13)
  1. WARFARIN [Suspect]
     Indication: ATRIAL FIBRILLATION
     Route: 048
     Dates: end: 20140223
  2. ASA [Concomitant]
  3. ATORVASTATIN [Concomitant]
  4. CARBIDOPA/LEVODOPA [Concomitant]
  5. CARVEDILOL [Concomitant]
  6. DIGOXIN [Concomitant]
  7. DONEPEZIL [Concomitant]
  8. FERROUS SULFATE [Concomitant]
  9. FUROSEMIDE [Concomitant]
  10. INSULIN GLARGINE [Concomitant]
  11. LOSARTAN [Concomitant]
  12. MULTIVITAMIN [Concomitant]
  13. PANTOPRAZOLE [Concomitant]

REACTIONS (8)
  - Cardiogenic shock [None]
  - Mental status changes [None]
  - Dyspnoea [None]
  - Weight increased [None]
  - Lower gastrointestinal haemorrhage [None]
  - International normalised ratio increased [None]
  - Prothrombin time prolonged [None]
  - Thrombocytopenia [None]
